FAERS Safety Report 15552450 (Version 4)
Quarter: 2019Q1

REPORT INFORMATION
  Report Type: Report from Study
  Country: US (occurrence: US)
  Receive Date: 20181025
  Receipt Date: 20190314
  Transmission Date: 20190417
  Serious: Yes (Death, Hospitalization)
  Sender: FDA-Public Use
  Company Number: US-ACTELION-A-US2018-179874

PATIENT
  Age: 69 Year
  Sex: Male
  Weight: 76.64 kg

DRUGS (5)
  1. LETAIRIS [Concomitant]
     Active Substance: AMBRISENTAN
  2. LASIX [Concomitant]
     Active Substance: FUROSEMIDE
     Dosage: 160 MG, BID
     Route: 065
  3. VELETRI [Suspect]
     Active Substance: EPOPROSTENOL
     Dosage: 22 NG/KG, PER MIN
     Route: 042
     Dates: start: 20180923
  4. VELETRI [Suspect]
     Active Substance: EPOPROSTENOL
     Dosage: 30.8 NG/KG, PER MIN
     Route: 042
  5. VELETRI [Suspect]
     Active Substance: EPOPROSTENOL
     Indication: PULMONARY ARTERIAL HYPERTENSION
     Dosage: 50.5 NG/KG, PER MIN
     Route: 042

REACTIONS (11)
  - Weight decreased [Unknown]
  - Peripheral swelling [Unknown]
  - Diarrhoea [Unknown]
  - Catheter site discharge [Unknown]
  - Oxygen saturation decreased [Unknown]
  - Death [Fatal]
  - Therapy change [Recovered/Resolved]
  - Anxiety [Unknown]
  - Flushing [Unknown]
  - Hypoxia [Unknown]
  - Headache [Unknown]

NARRATIVE: CASE EVENT DATE: 20180923
